FAERS Safety Report 5326011-X (Version None)
Quarter: 2007Q2

REPORT INFORMATION
  Report Type: 
  Country: None (occurrence: None)
  Receive Date: 20070516
  Receipt Date: 20070504
  Transmission Date: 20071010
  Serious: Yes (Other)
  Sender: FDA-Public Use
  Company Number: BE-JNJFOC-20030802650

PATIENT
  Age: 52 Year
  Sex: Female

DRUGS (9)
  1. REMICADE [Suspect]
     Indication: INFLAMMATORY BOWEL DISEASE
     Route: 042
  2. REMICADE [Suspect]
     Indication: RHEUMATOID ARTHRITIS
     Route: 042
  3. LEDERTREXATE [Concomitant]
  4. MEDROL [Concomitant]
  5. RANITIDINE [Concomitant]
  6. FOLIC ACID [Concomitant]
  7. ZOLPIDEM [Concomitant]
  8. AZATHIOPRINE [Concomitant]
  9. DACLIZUMAB [Concomitant]

REACTIONS (2)
  - BREAST CANCER [None]
  - LYMPHADENOPATHY [None]
